FAERS Safety Report 7012583-6 (Version None)
Quarter: 2010Q3

REPORT INFORMATION
  Report Type: 
  Country: None (occurrence: None)
  Receive Date: 20100924
  Receipt Date: 20100922
  Transmission Date: 20110219
  Serious: Yes (Life-Threatening)
  Sender: FDA-Public Use
  Company Number: PHHY2010IT60753

PATIENT
  Sex: Female

DRUGS (1)
  1. GLEEVEC [Suspect]
     Indication: CHRONIC MYELOID LEUKAEMIA
     Dosage: 400 MG, DAILY
     Route: 048
     Dates: start: 20020827, end: 20100709

REACTIONS (4)
  - ABDOMINAL PAIN [None]
  - METASTASES TO LIVER [None]
  - NEOPLASM MALIGNANT [None]
  - PANCREATIC CARCINOMA [None]
